FAERS Safety Report 13554450 (Version 4)
Quarter: 2017Q2

REPORT INFORMATION
  Report Type: Report from Study
  Country: US (occurrence: US)
  Receive Date: 20170517
  Receipt Date: 20170607
  Transmission Date: 20170830
  Serious: Yes (Death, Hospitalization)
  Sender: FDA-Public Use
  Company Number: US-ALEXION PHARMACEUTICALS INC.-A201705149

PATIENT
  Sex: Male

DRUGS (1)
  1. SOLIRIS [Suspect]
     Active Substance: ECULIZUMAB
     Indication: HAEMOLYTIC URAEMIC SYNDROME
     Dosage: 900 MG, QW
     Route: 042
     Dates: start: 20170502

REACTIONS (6)
  - Liver function test increased [Unknown]
  - Tachypnoea [Unknown]
  - Malaise [Fatal]
  - Tachycardia [Unknown]
  - Blood lactic acid increased [Unknown]
  - Blood albumin abnormal [Unknown]
